FAERS Safety Report 8435713 (Version 2)
Quarter: 2013Q3

REPORT INFORMATION
  Report Type: Report from Study
  Country: US (occurrence: US)
  Receive Date: 20120301
  Receipt Date: 20130923
  Transmission Date: 20140515
  Serious: Yes (Life-Threatening, Hospitalization, Other)
  Sender: FDA-Public Use
  Company Number: US-ACTELION-A-US2012-60071

PATIENT
  Age: 53 Year
  Sex: Female
  Weight: 69.39 kg

DRUGS (15)
  1. VELETRI [Suspect]
     Indication: PULMONARY ARTERIAL HYPERTENSION
     Dosage: 25 NG/KG, PER MIN
     Route: 042
     Dates: start: 20100728
  2. OXYGEN [Concomitant]
  3. ZAROXOLYN [Concomitant]
  4. LORTAB [Concomitant]
  5. MICRO K [Concomitant]
  6. NEXIUM [Concomitant]
  7. SYNTHROID [Concomitant]
  8. ALBUTEROL [Concomitant]
  9. FUROSEMIDE [Concomitant]
  10. MULTIVITAMIN [Concomitant]
  11. VITAMIN B12 [Concomitant]
  12. REVIA [Concomitant]
  13. COUMADIN [Concomitant]
  14. LETAIRIS [Concomitant]
  15. FEOSOL [Concomitant]

REACTIONS (7)
  - Pneumonia [Recovered/Resolved]
  - Pyrexia [Recovered/Resolved]
  - Chills [Recovered/Resolved]
  - Arthralgia [Recovered/Resolved]
  - Myalgia [Recovered/Resolved]
  - Dyspnoea [Recovered/Resolved]
  - Oxygen saturation decreased [Recovered/Resolved]
